FAERS Safety Report 10379383 (Version 1)
Quarter: 2014Q3

REPORT INFORMATION
  Report Type: Spontaneous
  Country: US (occurrence: None)
  Receive Date: 20140811
  Receipt Date: 20140811
  Transmission Date: 20150326
  Serious: Yes (Other)
  Sender: FDA-Public Use
  Company Number: None

PATIENT
  Sex: Female

DRUGS (1)
  1. TRAMADOL [Suspect]
     Active Substance: TRAMADOL
     Indication: NEUROPATHY PERIPHERAL
     Route: 048
     Dates: start: 20140805, end: 20140805

REACTIONS (4)
  - Pollakiuria [None]
  - Pain [None]
  - Hyperhidrosis [None]
  - Diarrhoea [None]

NARRATIVE: CASE EVENT DATE: 20140805
